FAERS Safety Report 5605143-2 (Version None)
Quarter: 2008Q1

REPORT INFORMATION
  Report Type: 
  Country: None (occurrence: None)
  Receive Date: 20080123
  Receipt Date: 20080114
  Transmission Date: 20080703
  Serious: Yes (Death)
  Sender: FDA-Public Use
  Company Number: B0503064A

PATIENT
  Age: 43 Year
  Sex: Female

DRUGS (11)
  1. BUPROPION HYDROCHLORIDE [Suspect]
     Dosage: ORAL
     Route: 048
  2. GABAPENTIN [Suspect]
     Dosage: ORAL
     Route: 048
  3. QUETIAPINE FUMARATE [Suspect]
     Dosage: ORAL
     Route: 048
  4. BETA-BLOCKER (FORMULATION UNKNOWN) (BETA BLOCKER) [Suspect]
     Dosage: ORAL
     Route: 048
  5. VENTOLIN [Suspect]
     Dosage: ORAL
     Route: 048
  6. FLUOXETINE [Suspect]
     Dosage: ORAL
     Route: 048
  7. SPIRONOLACTONE [Suspect]
     Dosage: ORAL
     Route: 048
  8. THYROID MEDICATION (FORMULATION UNKNOWN) (THYROID MEDICATION) [Suspect]
     Dosage: ORAL
     Route: 048
  9. FUROSEMIDE [Suspect]
     Dosage: ORAL
     Route: 048
  10. NAPROXEN [Suspect]
     Dosage: ORAL
     Route: 048
  11. COCAINE (FORMULATION UNKNOWN) (COCAINE) [Suspect]

REACTIONS (1)
  - COMPLETED SUICIDE [None]
